FAERS Safety Report 8909324 (Version 2)
Quarter: 2012Q4

REPORT INFORMATION
  Report Type: 
  Country: JP (occurrence: JP)
  Receive Date: 20121114
  Receipt Date: 20121128
  Transmission Date: 20130627
  Serious: Yes (Hospitalization)
  Sender: FDA-Public Use
  Company Number: JP-MERCK-1211JPN005505

PATIENT
  Age: 80 Year
  Sex: Female

DRUGS (5)
  1. GLACTIV [Suspect]
     Indication: TYPE 2 DIABETES MELLITUS
     Dosage: 50 mg, qd
     Route: 048
     Dates: start: 20121016, end: 20121105
  2. RIMATIL [Concomitant]
     Dosage: UNK
  3. MUCOSOLVAN [Concomitant]
  4. NORVASC [Concomitant]
  5. CARDENALIN [Concomitant]

REACTIONS (1)
  - Eczema [Recovering/Resolving]
